FAERS Safety Report 9457931 (Version 2)
Quarter: 2013Q4

REPORT INFORMATION
  Report Type: Spontaneous
  Country: CA (occurrence: CA)
  Receive Date: 20130814
  Receipt Date: 20131111
  Transmission Date: 20140711
  Serious: Yes (Hospitalization, Other)
  Sender: FDA-Public Use
  Company Number: CA-SANOFI-AVENTIS-2013SA079857

PATIENT
  Age: 62 Year
  Sex: Female

DRUGS (9)
  1. PLAVIX [Suspect]
     Indication: PRODUCT USED FOR UNKNOWN INDICATION
     Route: 048
  2. LANTUS [Suspect]
     Indication: PRODUCT USED FOR UNKNOWN INDICATION
     Dosage: FORM: SOLUTION
     Route: 058
  3. METFORMIN HYDROCHLORIDE [Suspect]
     Indication: PRODUCT USED FOR UNKNOWN INDICATION
     Route: 048
  4. ASPIRIN [Suspect]
     Indication: PRODUCT USED FOR UNKNOWN INDICATION
     Route: 065
  5. NOVORAPID [Suspect]
     Indication: PRODUCT USED FOR UNKNOWN INDICATION
     Dosage: FORM: LIQUID
     Route: 058
  6. ANGIOTENSIN II ANTAGONISTS [Concomitant]
  7. ANTIHYPERTENSIVES [Concomitant]
  8. HEPARIN SODIUM [Concomitant]
     Route: 042
  9. OTHER LIPID MODIFYING AGENTS [Concomitant]

REACTIONS (3)
  - Hepatic neoplasm [Unknown]
  - General physical health deterioration [Unknown]
  - Upper gastrointestinal haemorrhage [Unknown]
